FAERS Safety Report 25950750 (Version 1)
Quarter: 2025Q4

REPORT INFORMATION
  Report Type: Spontaneous
  Country: JP (occurrence: JP)
  Receive Date: 20251023
  Receipt Date: 20251023
  Transmission Date: 20260118
  Serious: Yes (Life-Threatening, Other)
  Sender: ASTELLAS
  Company Number: JP-ASTELLAS-2025-AER-033733

PATIENT
  Age: 13 Year
  Sex: Male

DRUGS (1)
  1. PROGRAF [Suspect]
     Active Substance: TACROLIMUS
     Indication: Colitis ulcerative
     Route: 065

REACTIONS (2)
  - Nephropathy toxic [Recovering/Resolving]
  - Product use issue [Unknown]
